FAERS Safety Report 21970365 (Version 1)
Quarter: 2023Q1

REPORT INFORMATION
  Report Type: Other
  Country: ES (occurrence: ES)
  Receive Date: 20230209
  Receipt Date: 20230209
  Transmission Date: 20230417
  Serious: Yes (Life-Threatening, Hospitalization, Other)
  Sender: FDA-Public Use
  Company Number: ES-MACLEODS PHARMACEUTICALS US LTD-MAC2023039558

PATIENT

DRUGS (6)
  1. LEVOFLOXACIN [Suspect]
     Active Substance: LEVOFLOXACIN
     Indication: Lung infiltration
     Dosage: UNK
     Route: 065
  2. METHYLPREDNISOLONE [Suspect]
     Active Substance: METHYLPREDNISOLONE
     Indication: Lung infiltration
     Dosage: UNK, POWDER FOR SOLUTION FOR INJECTION
     Route: 042
  3. PIPERACILLIN SODIUM\TAZOBACTAM SODIUM [Suspect]
     Active Substance: PIPERACILLIN SODIUM\TAZOBACTAM SODIUM
     Indication: Lung infiltration
     Dosage: UNK
     Route: 065
  4. PREDNISONE [Concomitant]
     Active Substance: PREDNISONE
     Indication: Prostate cancer stage IV
     Dosage: 5 MILLIGRAM, QD
     Route: 065
  5. DOCETAXEL [Concomitant]
     Active Substance: DOCETAXEL
     Indication: Prostate cancer stage IV
     Dosage: UNK
     Route: 065
  6. ATEZOLIZUMAB [Concomitant]
     Active Substance: ATEZOLIZUMAB
     Indication: Prostate cancer stage IV
     Dosage: UNK
     Route: 065

REACTIONS (2)
  - Strongyloidiasis [Recovered/Resolved]
  - Pulmonary toxicity [Unknown]
